FAERS Safety Report 19009550 (Version 1)
Quarter: 2021Q1

REPORT INFORMATION
  Report Type: Report from Study
  Country: US (occurrence: US)
  Receive Date: 20210315
  Receipt Date: 20210315
  Transmission Date: 20210420
  Serious: Yes (Other)
  Sender: FDA-Public Use
  Company Number: US-KYOWAKIRIN-2021BKK003575

PATIENT

DRUGS (4)
  1. CRYSVITA [Suspect]
     Active Substance: BUROSUMAB-TWZA
     Indication: HEREDITARY HYPOPHOSPHATAEMIC RICKETS
     Dosage: 70 MG (2 INJECTIONS OF 30 MG AND 1 INJECTION OF 10 MG)
     Route: 065
     Dates: start: 202008
  2. CRYSVITA [Suspect]
     Active Substance: BUROSUMAB-TWZA
     Dosage: 70 MG (2 INJECTIONS OF 30 MG AND 1 INJECTION OF 10 MG)
     Route: 065
     Dates: start: 20210207
  3. CRYSVITA [Suspect]
     Active Substance: BUROSUMAB-TWZA
     Indication: HEREDITARY HYPOPHOSPHATAEMIC RICKETS
     Dosage: 70 MG (2 INJECTIONS OF 30 MG AND 1 INJECTION OF 10 MG)
     Route: 065
     Dates: start: 202008
  4. CRYSVITA [Suspect]
     Active Substance: BUROSUMAB-TWZA
     Dosage: 70 MG (2 INJECTIONS OF 30 MG AND 1 INJECTION OF 10 MG)
     Route: 065
     Dates: start: 20210207

REACTIONS (2)
  - Clavicle fracture [Unknown]
  - Pain in extremity [Unknown]
